FAERS Safety Report 6006813-7 (Version None)
Quarter: 2008Q4

REPORT INFORMATION
  Report Type: 
  Country: None (occurrence: None)
  Receive Date: 20081217
  Receipt Date: 20080728
  Transmission Date: 20090506
  Serious: No
  Sender: FDA-Public Use
  Company Number: US-ASTRAZENECA-2007UW07810

PATIENT
  Age: 79 Year
  Sex: Female
  Weight: 43.1 kg

DRUGS (7)
  1. CRESTOR [Suspect]
     Indication: BLOOD CHOLESTEROL
     Route: 048
     Dates: start: 20070301
  2. FORTEO [Concomitant]
  3. METOPROLOL TARTRATE [Concomitant]
     Route: 048
  4. PLENDIL [Concomitant]
  5. ASPIRIN [Concomitant]
  6. LIPITOR [Concomitant]
  7. NORVASC [Concomitant]

REACTIONS (2)
  - ASTHENIA [None]
  - PAIN [None]
